FAERS Safety Report 4850476-0 (Version None)
Quarter: 2005Q4

REPORT INFORMATION
  Report Type: 
  Country: None (occurrence: None)
  Receive Date: 20051123
  Receipt Date: 20050916
  Transmission Date: 20060501
  Serious: No
  Sender: FDA-Public Use
  Company Number: 217830

PATIENT
  Age: 45 Year
  Sex: Male
  Weight: 121.5 kg

DRUGS (1)
  1. RAPTIVA [Suspect]
     Indication: PSORIASIS
     Dosage: 122 MG, 1/WEEK, SUBCUTANEOUS
     Route: 058
     Dates: start: 20040104

REACTIONS (1)
  - HEADACHE [None]
